FAERS Safety Report 18165918 (Version 1)
Quarter: 2020Q3

REPORT INFORMATION
  Report Type: Report from Study
  Country: GB (occurrence: GB)
  Receive Date: 20200818
  Receipt Date: 20200818
  Transmission Date: 20201103
  Serious: Yes (Other)
  Sender: FDA-Public Use
  Company Number: NVSC2020GB023125

PATIENT
  Age: 70 Year
  Sex: Female

DRUGS (7)
  1. LEVOTHYROXINE. [Concomitant]
     Active Substance: LEVOTHYROXINE
     Indication: HYPOTHYROIDISM
     Dosage: UNK
     Route: 065
     Dates: start: 201601
  2. OXAZEPAM. [Concomitant]
     Active Substance: OXAZEPAM
     Indication: ANXIETY
     Dosage: UNK
     Route: 065
     Dates: start: 199103
  3. QUININE SULPHATE [Concomitant]
     Active Substance: QUININE SULFATE
     Indication: MUSCLE SPASMS
     Dosage: UNK
     Route: 065
     Dates: start: 200210
  4. KISQALI [Suspect]
     Active Substance: RIBOCICLIB
     Indication: BREAST CANCER
     Dosage: 600 OT, UNK
     Route: 048
     Dates: start: 20190205
  5. LISINOPRIL. [Concomitant]
     Active Substance: LISINOPRIL
     Indication: HYPERTENSION
     Dosage: UNK
     Route: 065
     Dates: start: 200612
  6. QVAR [Concomitant]
     Active Substance: BECLOMETHASONE DIPROPIONATE
     Indication: ASTHMA
     Dosage: 100 OT
     Route: 065
     Dates: start: 200406
  7. SALBUTAMOL [Concomitant]
     Active Substance: ALBUTEROL
     Indication: ASTHMA
     Dosage: 100 OT
     Route: 065
     Dates: start: 199009

REACTIONS (24)
  - Leukopenia [Recovered/Resolved with Sequelae]
  - Leukopenia [Recovered/Resolved with Sequelae]
  - Leukopenia [Recovered/Resolved with Sequelae]
  - Leukopenia [Recovered/Resolved with Sequelae]
  - Leukopenia [Recovered/Resolved with Sequelae]
  - Neutropenia [Recovered/Resolved]
  - Leukopenia [Not Recovered/Not Resolved]
  - Neutropenia [Not Recovered/Not Resolved]
  - Neutropenia [Recovered/Resolved]
  - Anaemia [Recovered/Resolved]
  - Cellulitis [Recovered/Resolved]
  - Leukopenia [Recovered/Resolved with Sequelae]
  - Leukopenia [Recovered/Resolved with Sequelae]
  - Thrombocytopenia [Recovered/Resolved]
  - Anaemia [Not Recovered/Not Resolved]
  - Neutropenia [Recovered/Resolved]
  - Anaemia [Recovered/Resolved]
  - Anaemia [Recovered/Resolved]
  - Neutropenia [Recovered/Resolved]
  - Leukopenia [Recovered/Resolved with Sequelae]
  - Hypocalcaemia [Recovered/Resolved]
  - Hypocalcaemia [Recovered/Resolved]
  - Alopecia [Not Recovered/Not Resolved]
  - Leukopenia [Recovered/Resolved with Sequelae]

NARRATIVE: CASE EVENT DATE: 20190304
